FAERS Safety Report 8256750 (Version 3)
Quarter: 2012Q4

REPORT INFORMATION
  Report Type: 
  Country: GR (occurrence: GR)
  Receive Date: 20111121
  Receipt Date: 20121030
  Transmission Date: 20130627
  Serious: Yes (Disabling, Other)
  Sender: FDA-Public Use
  Company Number: GR-AMGEN-GRCSP2011059208

PATIENT
  Sex: Female

DRUGS (6)
  1. PROLIA [Suspect]
     Indication: OSTEOPOROSIS POSTMENOPAUSAL
     Dosage: 60 mg, q6mo
     Dates: start: 201106
  2. EUTHYROX [Concomitant]
     Dosage: 0.75 UNK, qd
  3. CARVEPEN [Concomitant]
     Dosage: 6.25 UNK, UNK
  4. ONEALPHA [Concomitant]
  5. XANAX [Concomitant]
     Dosage: 0.5 mg, qd
  6. LIPITOR [Concomitant]
     Dosage: 10 mg, qod

REACTIONS (3)
  - Macular degeneration [Recovered/Resolved]
  - Meniscus injury [Recovered/Resolved]
  - Goitre [Unknown]
